FAERS Safety Report 9088341 (Version 1)
Quarter: 2013Q1

REPORT INFORMATION
  Report Type: Spontaneous
  Country: US (occurrence: US)
  Receive Date: 20130131
  Receipt Date: 20130131
  Transmission Date: 20140127
  Serious: Yes (Death)
  Sender: FDA-Public Use
  Company Number: US-ASTELLAS-2013US001077

PATIENT
  Sex: Female

DRUGS (11)
  1. TARCEVA [Suspect]
     Indication: BREAST CANCER FEMALE
     Dosage: UNK
     Route: 048
  2. TARCEVA [Suspect]
     Indication: METASTASES TO LIVER
  3. TAXOTERE [Concomitant]
     Indication: PRODUCT USED FOR UNKNOWN INDICATION
     Dosage: UNK
     Route: 065
  4. HERCEPTIN [Concomitant]
     Indication: PRODUCT USED FOR UNKNOWN INDICATION
     Dosage: UNK
     Route: 065
     Dates: start: 20041216, end: 2007
  5. ZOMETA [Concomitant]
     Indication: PRODUCT USED FOR UNKNOWN INDICATION
     Dosage: UNK
     Route: 065
  6. NAVELBINE [Concomitant]
     Indication: PRODUCT USED FOR UNKNOWN INDICATION
     Dosage: UNK
     Route: 065
     Dates: end: 20060503
  7. NAVELBINE [Concomitant]
     Dosage: UNK
     Route: 065
     Dates: start: 20060614
  8. NAVELBINE [Concomitant]
     Dosage: UNK
     Route: 065
     Dates: start: 200607
  9. GEMCITABINE                        /01215702/ [Concomitant]
     Indication: PRODUCT USED FOR UNKNOWN INDICATION
     Dosage: UNK
     Route: 065
     Dates: start: 200607, end: 200609
  10. ABRAXANE [Concomitant]
     Indication: PRODUCT USED FOR UNKNOWN INDICATION
     Dosage: UNK
     Route: 065
     Dates: start: 200607
  11. AVASTIN                            /01555201/ [Concomitant]
     Indication: PRODUCT USED FOR UNKNOWN INDICATION
     Dosage: UNK
     Route: 065

REACTIONS (2)
  - Off label use [Unknown]
  - Death [Fatal]
